FAERS Safety Report 10175412 (Version 3)
Quarter: 2014Q3

REPORT INFORMATION
  Report Type: Spontaneous
  Country: US (occurrence: US)
  Receive Date: 20140515
  Receipt Date: 20140721
  Transmission Date: 20150326
  Serious: Yes (Hospitalization, Other)
  Sender: FDA-Public Use
  Company Number: US-GILEAD-2014-0102525

PATIENT
  Age: 44 Year
  Sex: Female

DRUGS (3)
  1. LETAIRIS [Suspect]
     Active Substance: AMBRISENTAN
     Indication: PRODUCT USED FOR UNKNOWN INDICATION
     Dosage: 10 MG, QD
     Route: 065
     Dates: start: 20121030
  2. COUMADIN [Suspect]
     Active Substance: WARFARIN SODIUM
     Indication: PRODUCT USED FOR UNKNOWN INDICATION
     Route: 065
  3. LEVONOX [Suspect]
     Active Substance: LEVOFLOXACIN
     Indication: PRODUCT USED FOR UNKNOWN INDICATION
     Route: 042

REACTIONS (6)
  - Cardiac pacemaker insertion [Unknown]
  - Syncope [Unknown]
  - International normalised ratio fluctuation [Unknown]
  - Catheterisation cardiac [Unknown]
  - Contusion [Unknown]
  - Unevaluable event [Unknown]

NARRATIVE: CASE EVENT DATE: 201405
